APPROVED DRUG PRODUCT: VFEND
Active Ingredient: VORICONAZOLE
Strength: 200MG/5ML
Dosage Form/Route: FOR SUSPENSION;ORAL
Application: N021630 | Product #001 | TE Code: AB
Applicant: PF PRISM CV
Approved: Dec 19, 2003 | RLD: Yes | RS: Yes | Type: RX